FAERS Safety Report 4890657-3 (Version None)
Quarter: 2006Q1

REPORT INFORMATION
  Report Type: 
  Country: None (occurrence: None)
  Receive Date: 20060123
  Receipt Date: 20060114
  Transmission Date: 20060701
  Serious: Yes (Other)
  Sender: FDA-Public Use
  Company Number: 2006007488

PATIENT
  Sex: Male

DRUGS (1)
  1. MECLIZINE [Suspect]
     Indication: MOTION SICKNESS
     Dosage: 20 TABLETS, ORAL
     Route: 048
     Dates: start: 20060114, end: 20060114

REACTIONS (1)
  - HALLUCINATION, VISUAL [None]
